FAERS Safety Report 18549241 (Version 1)
Quarter: 2020Q4

REPORT INFORMATION
  Report Type: Other
  Country: CA (occurrence: CA)
  Receive Date: 20201126
  Receipt Date: 20201126
  Transmission Date: 20210114
  Serious: Yes (Death, Other)
  Sender: FDA-Public Use
  Company Number: CA-APOTEX-2020AP022192

PATIENT
  Age: 74 Year
  Sex: Male
  Weight: 130 kg

DRUGS (5)
  1. GABAPENTIN. [Suspect]
     Active Substance: GABAPENTIN
     Indication: PRODUCT USED FOR UNKNOWN INDICATION
     Dosage: UNK
     Route: 065
  2. RAMIPRIL. [Concomitant]
     Active Substance: RAMIPRIL
     Indication: PRODUCT USED FOR UNKNOWN INDICATION
     Dosage: UNK
     Route: 065
  3. OXYGEN. [Concomitant]
     Active Substance: OXYGEN
     Indication: PRODUCT USED FOR UNKNOWN INDICATION
     Dosage: UNK
     Route: 065
  4. ESBRIET [Suspect]
     Active Substance: PIRFENIDONE
     Indication: IDIOPATHIC PULMONARY FIBROSIS
     Dosage: 801 MILLIGRAM, TID
     Route: 048
  5. OMEPRAZOLE. [Concomitant]
     Active Substance: OMEPRAZOLE
     Indication: PRODUCT USED FOR UNKNOWN INDICATION
     Dosage: UNK
     Route: 065

REACTIONS (14)
  - Weight decreased [Fatal]
  - Diarrhoea [Fatal]
  - Muscle twitching [Fatal]
  - Vomiting [Fatal]
  - Psychomotor hyperactivity [Fatal]
  - Decreased appetite [Fatal]
  - Insomnia [Fatal]
  - Dizziness [Fatal]
  - Nausea [Fatal]
  - Death [Fatal]
  - Pain in extremity [Fatal]
  - Pulmonary function test decreased [Fatal]
  - Breast mass [Fatal]
  - Rash [Fatal]
